FAERS Safety Report 4585332-9 (Version None)
Quarter: 2005Q1

REPORT INFORMATION
  Report Type: 
  Country: None (occurrence: None)
  Receive Date: 20050214
  Receipt Date: 20050127
  Transmission Date: 20050727
  Serious: Yes (Death)
  Sender: FDA-Public Use
  Company Number: DSA_24891_2004

PATIENT
  Age: 56 Year
  Sex: Male

DRUGS (3)
  1. TEVETEN [Suspect]
     Indication: HYPERTENSION
     Dosage: 250 MG Q DAY PO
     Route: 048
     Dates: start: 20040820
  2. LEXAPRO [Suspect]
     Indication: DEPRESSION
     Dosage: 5 MG QHS
     Dates: start: 20040820
  3. PROTONIX [Suspect]
     Indication: ABDOMINAL PAIN UPPER
     Dosage: 40 MG QHS
     Dates: start: 20040820

REACTIONS (7)
  - ANXIETY [None]
  - COMPLETED SUICIDE [None]
  - CONDITION AGGRAVATED [None]
  - DEPRESSION [None]
  - DISEASE RECURRENCE [None]
  - GUN SHOT WOUND [None]
  - LUNG DISORDER [None]
